FAERS Safety Report 15706125 (Version 1)
Quarter: 2018Q4

REPORT INFORMATION
  Report Type: Spontaneous
  Country: US (occurrence: US)
  Receive Date: 20181210
  Receipt Date: 20181210
  Transmission Date: 20190205
  Serious: Yes (Hospitalization, Other)
  Sender: FDA-Public Use
  Company Number: US-SHIRE-US201846859

PATIENT
  Age: 72 Year
  Sex: Female

DRUGS (1)
  1. GATTEX [Suspect]
     Active Substance: TEDUGLUTIDE\WATER
     Indication: PRODUCT USED FOR UNKNOWN INDICATION
     Dosage: 0.279 (UNIT: UNKNOWN)UNK
     Route: 065

REACTIONS (3)
  - Ageusia [Not Recovered/Not Resolved]
  - Anosmia [Not Recovered/Not Resolved]
  - Hospitalisation [Unknown]

NARRATIVE: CASE EVENT DATE: 20181001
